FAERS Safety Report 22287446 (Version 2)
Quarter: 2023Q2

REPORT INFORMATION
  Report Type: Report from Study
  Country: US (occurrence: US)
  Receive Date: 20230505
  Receipt Date: 20230621
  Transmission Date: 20230721
  Serious: Yes (Other)
  Sender: FDA-Public Use
  Company Number: US-ABBVIE-4750440

PATIENT
  Age: 64 Year
  Sex: Female
  Weight: 64.863 kg

DRUGS (4)
  1. SKYRIZI [Suspect]
     Active Substance: RISANKIZUMAB-RZAA
     Indication: Psoriatic arthropathy
     Dosage: FORM STRENGTH : 150 MILLIGRAM
     Route: 058
     Dates: start: 20220418, end: 20230126
  2. SKYRIZI [Suspect]
     Active Substance: RISANKIZUMAB-RZAA
     Indication: Psoriasis
  3. METFORMIN [Concomitant]
     Active Substance: METFORMIN HYDROCHLORIDE
     Indication: Type 2 diabetes mellitus
  4. ROSUVASTATIN [Concomitant]
     Active Substance: ROSUVASTATIN
     Indication: Blood cholesterol increased
     Route: 065

REACTIONS (7)
  - Throat cancer [Recovering/Resolving]
  - Dysphonia [Recovered/Resolved]
  - Oral mucosal scab [Recovered/Resolved]
  - Cataract [Recovered/Resolved]
  - Polyp [Not Recovered/Not Resolved]
  - Laryngitis [Not Recovered/Not Resolved]
  - Laryngeal cancer [Recovering/Resolving]

NARRATIVE: CASE EVENT DATE: 20221209
